FAERS Safety Report 24085845 (Version 1)
Quarter: 2024Q3

REPORT INFORMATION
  Report Type: Report from Study
  Country: BR (occurrence: BR)
  Receive Date: 20240712
  Receipt Date: 20240712
  Transmission Date: 20241017
  Serious: Yes (Hospitalization, Other)
  Sender: JOHNSON AND JOHNSON
  Company Number: BR-JNJFOC-20240720292

PATIENT
  Age: 75 Year
  Sex: Female
  Weight: 60 kg

DRUGS (17)
  1. GOLIMUMAB [Suspect]
     Active Substance: GOLIMUMAB
     Indication: Psoriatic arthropathy
     Route: 058
     Dates: start: 20220519
  2. GOLIMUMAB [Suspect]
     Active Substance: GOLIMUMAB
  3. GOLIMUMAB [Suspect]
     Active Substance: GOLIMUMAB
  4. GOLIMUMAB [Suspect]
     Active Substance: GOLIMUMAB
  5. SIMPONI [Suspect]
     Active Substance: GOLIMUMAB
     Indication: Psoriatic arthropathy
     Route: 058
  6. SIMPONI [Suspect]
     Active Substance: GOLIMUMAB
  7. SIMPONI [Suspect]
     Active Substance: GOLIMUMAB
  8. SIMPONI [Suspect]
     Active Substance: GOLIMUMAB
  9. PREGABALIN [Concomitant]
     Active Substance: PREGABALIN
  10. TOPIRAMATE [Concomitant]
     Active Substance: TOPIRAMATE
  11. NALOXONE HYDROCHLORIDE\OXYCODONE HYDROCHLORIDE [Concomitant]
     Active Substance: NALOXONE HYDROCHLORIDE\OXYCODONE HYDROCHLORIDE
  12. NORTRIPTYLINE [Concomitant]
     Active Substance: NORTRIPTYLINE
     Indication: Product used for unknown indication
  13. QUETIAPINE [Concomitant]
     Active Substance: QUETIAPINE
  14. RIVOTRIL [Concomitant]
     Active Substance: CLONAZEPAM
     Route: 058
  15. CALCIUM [Concomitant]
     Active Substance: CALCIUM
  16. ERGOCALCIFEROL [Concomitant]
     Active Substance: ERGOCALCIFEROL
  17. PREDNISONE [Concomitant]
     Active Substance: PREDNISONE

REACTIONS (7)
  - Pelvic fracture [Unknown]
  - Colitis [Recovered/Resolved]
  - Psoriatic arthropathy [Unknown]
  - COVID-19 [Unknown]
  - Fall [Unknown]
  - Dizziness [Recovered/Resolved]
  - Influenza [Recovered/Resolved]
